FAERS Safety Report 5377391-0 (Version None)
Quarter: 2007Q3

REPORT INFORMATION
  Report Type: 
  Country: None (occurrence: None)
  Receive Date: 20070703
  Receipt Date: 20070628
  Transmission Date: 20080115
  Serious: Yes (Hospitalization, Other)
  Sender: FDA-Public Use
  Company Number: A0655111A

PATIENT
  Age: 68 Year
  Sex: Male
  Weight: 69.9 kg

DRUGS (4)
  1. AVANDIA [Suspect]
     Dosage: 2MGD UNKNOWN
     Route: 048
  2. GLYBURIDE AND METFORMIN HCL [Concomitant]
     Route: 065
  3. ASPIRIN [Concomitant]
  4. ZETIA [Concomitant]

REACTIONS (12)
  - ANGINA PECTORIS [None]
  - CHEST PAIN [None]
  - CORONARY ARTERY DISEASE [None]
  - CORONARY ARTERY OCCLUSION [None]
  - DRY MOUTH [None]
  - DYSPNOEA [None]
  - EMOTIONAL DISTRESS [None]
  - FATIGUE [None]
  - MIDDLE INSOMNIA [None]
  - NOCTURIA [None]
  - PALPITATIONS [None]
  - VASCULAR STENOSIS [None]
